FAERS Safety Report 10171140 (Version 1)
Quarter: 2014Q2

REPORT INFORMATION
  Report Type: Spontaneous
  Country: GB (occurrence: GB)
  Receive Date: 20140514
  Receipt Date: 20140514
  Transmission Date: 20141212
  Serious: Yes (Other)
  Sender: FDA-Public Use
  Company Number: GB-SA-2014SA059211

PATIENT
  Sex: Female
  Weight: 93 kg

DRUGS (6)
  1. MULTAQ [Suspect]
     Indication: ATRIAL FIBRILLATION
     Route: 048
     Dates: start: 20140121, end: 20140307
  2. SALAZOPYRIN [Concomitant]
     Indication: ARTHRITIS
     Dosage: NOT STOPPED.
     Route: 048
     Dates: start: 20110528
  3. ASPIRIN [Concomitant]
     Indication: PROPHYLAXIS
     Dosage: NOT STOPPED.
     Route: 048
     Dates: start: 20010407
  4. LANSOPRAZOLE [Concomitant]
     Indication: DYSPEPSIA
     Dosage: NOT STOPPED.
     Route: 048
     Dates: start: 20131127
  5. SIMVASTATIN [Concomitant]
     Indication: PROPHYLAXIS
     Dosage: NOT STOPPED.
     Route: 048
     Dates: start: 20091222
  6. BENDROFLUAZIDE [Concomitant]
     Indication: HYPERTENSION
     Dosage: NOT STOPPED.
     Route: 048
     Dates: start: 20030721

REACTIONS (2)
  - Malaise [Recovered/Resolved]
  - Liver function test abnormal [Recovered/Resolved]
